FAERS Safety Report 23936335 (Version 1)
Quarter: 2024Q2

REPORT INFORMATION
  Report Type: Spontaneous
  Country: US (occurrence: US)
  Receive Date: 20240604
  Receipt Date: 20240604
  Transmission Date: 20240716
  Serious: Yes (Other)
  Sender: FDA-Public Use
  Company Number: US-Fresenius Kabi Compounding, LLC-2157736

PATIENT
  Sex: Male

DRUGS (1)
  1. SUCCINYLCHOLINE [Suspect]
     Active Substance: SUCCINYLCHOLINE

REACTIONS (1)
  - Drug ineffective [Recovered/Resolved]

NARRATIVE: CASE EVENT DATE: 20240517
